FAERS Safety Report 5700192-8 (Version None)
Quarter: 2008Q2

REPORT INFORMATION
  Report Type: 
  Country: None (occurrence: None)
  Receive Date: 20080409
  Receipt Date: 20080404
  Transmission Date: 20081010
  Serious: Yes (Death, Hospitalization)
  Sender: FDA-Public Use
  Company Number: FR-JNJFOC-20080401111

PATIENT
  Age: 89 Year
  Sex: Female

DRUGS (17)
  1. TAVANIC [Suspect]
     Indication: PULMONARY EMBOLISM
     Route: 048
  2. PREVISCAN [Suspect]
     Route: 048
  3. PREVISCAN [Suspect]
     Indication: PULMONARY EMBOLISM
     Route: 048
  4. INNOHEP [Suspect]
     Route: 058
  5. INNOHEP [Suspect]
     Indication: PULMONARY EMBOLISM
     Route: 058
  6. LEVOTHYROXINE SODIUM [Suspect]
     Indication: DRUG USE FOR UNKNOWN INDICATION
     Route: 048
  7. DEROXAT [Suspect]
     Indication: DRUG USE FOR UNKNOWN INDICATION
     Route: 048
  8. TRIFLUCAN [Suspect]
     Indication: DRUG USE FOR UNKNOWN INDICATION
     Route: 048
  9. CEFTRIAXONE [Suspect]
     Indication: PULMONARY EMBOLISM
     Route: 042
  10. PRIMPERAN INJ [Concomitant]
     Indication: VOMITING
     Route: 065
  11. ALDACTONE [Concomitant]
     Indication: HYPERTENSION
     Route: 048
  12. COVERSYL [Concomitant]
     Indication: HYPERTENSION
     Route: 048
  13. FORLAX [Concomitant]
     Indication: CONSTIPATION
     Route: 048
  14. LASILIX [Concomitant]
     Indication: HYPERTENSION
     Route: 048
  15. RIVOTRIL [Concomitant]
     Indication: DEPRESSION
     Route: 065
  16. INSULATARD [Concomitant]
     Indication: TYPE 1 DIABETES MELLITUS
     Route: 058
  17. UMULINE [Concomitant]
     Indication: TYPE 1 DIABETES MELLITUS
     Route: 058

REACTIONS (4)
  - ANAEMIA [None]
  - CARDIOGENIC SHOCK [None]
  - HAEMATEMESIS [None]
  - RECTAL HAEMORRHAGE [None]
